FAERS Safety Report 9257547 (Version 2)
Quarter: 2013Q2

REPORT INFORMATION
  Report Type: Report from Study
  Country: CA (occurrence: CA)
  Receive Date: 20130426
  Receipt Date: 20130611
  Transmission Date: 20140414
  Serious: Yes (Hospitalization, Disabling)
  Sender: FDA-Public Use
  Company Number: CA-JNJFOC-20130409952

PATIENT
  Age: 49 Year
  Sex: Female
  Weight: 54.5 kg

DRUGS (8)
  1. REMICADE [Suspect]
     Indication: CROHN^S DISEASE
     Route: 042
     Dates: start: 20121203
  2. REMICADE [Suspect]
     Indication: CROHN^S DISEASE
     Route: 042
     Dates: start: 201303
  3. ALPRAZOLAM [Concomitant]
     Dosage: 1-3 TIMES/DAY
     Route: 065
  4. METHOTREXATE [Concomitant]
     Route: 065
  5. DILAUDID [Concomitant]
     Dosage: Q4H PRN
     Route: 065
  6. OMEPRAZOLE [Concomitant]
     Route: 065
  7. GRAVOL [Concomitant]
     Route: 065
  8. HYDROCORTISONE [Concomitant]
     Indication: PREMEDICATION
     Route: 065

REACTIONS (5)
  - Perineal pain [Recovering/Resolving]
  - Crohn^s disease [Recovering/Resolving]
  - Fistula [Unknown]
  - Abscess [Unknown]
  - Arthralgia [Not Recovered/Not Resolved]
